FAERS Safety Report 5062798-1 (Version None)
Quarter: 2006Q3

REPORT INFORMATION
  Report Type: 
  Country: None (occurrence: None)
  Receive Date: 20060725
  Receipt Date: 20060725
  Transmission Date: 20061208
  Serious: Yes (Hospitalization)
  Sender: FDA-Public Use
  Company Number: None

PATIENT
  Age: 81 Year
  Sex: Female
  Weight: 58.0604 kg

DRUGS (13)
  1. OXANDRIN [Suspect]
     Indication: WEIGHT DECREASED
     Dosage: 10MG PO BID
     Route: 048
     Dates: start: 20060706
  2. PROMETHAZINE [Concomitant]
  3. PLAVIX [Concomitant]
  4. DIOVAN HCT [Concomitant]
  5. ACTOS/MET [Concomitant]
  6. NEXIUM [Concomitant]
  7. ATENOLOL [Concomitant]
  8. DETROL LA [Concomitant]
  9. XALATAN [Concomitant]
  10. ZOCOR [Concomitant]
  11. IRON [Concomitant]
  12. ASPIRIN [Concomitant]
  13. CARBOPLATIN/VP16 [Concomitant]

REACTIONS (1)
  - FEBRILE NEUTROPENIA [None]
